FAERS Safety Report 6795960-8 (Version None)
Quarter: 2010Q2

REPORT INFORMATION
  Report Type: 
  Country: None (occurrence: None)
  Receive Date: 20100625
  Receipt Date: 20100615
  Transmission Date: 20101027
  Serious: Yes (Hospitalization, Other)
  Sender: FDA-Public Use
  Company Number: B0662064A

PATIENT
  Age: 64 Year
  Sex: Female

DRUGS (6)
  1. ARIXTRA [Suspect]
     Indication: PULMONARY EMBOLISM
     Route: 058
     Dates: start: 20100326, end: 20100525
  2. SERETIDE [Concomitant]
  3. LOXEN [Concomitant]
  4. CRESTOR [Concomitant]
  5. LORAZEPAM [Concomitant]
  6. ACTISKENAN [Concomitant]

REACTIONS (3)
  - EPIDERMAL NECROSIS [None]
  - HAEMATOMA [None]
  - INCORRECT DRUG ADMINISTRATION DURATION [None]
